FAERS Safety Report 19987102 (Version 1)
Quarter: 2021Q4

REPORT INFORMATION
  Report Type: Spontaneous
  Country: GB (occurrence: GB)
  Receive Date: 20211023
  Receipt Date: 20211023
  Transmission Date: 20220303
  Serious: Yes (Life-Threatening, Hospitalization, Disabling, Congenital Anomaly, Other)
  Sender: FDA-Public Use
  Company Number: GB-ABBVIE-21K-167-4129626-00

PATIENT
  Sex: Male
  Weight: 2 kg

DRUGS (1)
  1. EPILIM [Suspect]
     Active Substance: VALPROATE SODIUM
     Indication: Maternal exposure timing unspecified
     Route: 064

REACTIONS (17)
  - Near death experience [Unknown]
  - Surgery [Unknown]
  - Low birth weight baby [Unknown]
  - Premature baby [Unknown]
  - Skin discolouration [Recovered/Resolved]
  - Cerebral haemorrhage neonatal [Unknown]
  - Xanthogranuloma [Unknown]
  - Intraventricular haemorrhage neonatal [Unknown]
  - Retinopathy of prematurity [Unknown]
  - Cerebral palsy [Unknown]
  - Limb deformity [Unknown]
  - Partial seizures [Unknown]
  - Constipation [Unknown]
  - Jaundice [Unknown]
  - Developmental delay [Unknown]
  - Autism spectrum disorder [Unknown]
  - Foetal exposure during pregnancy [Unknown]

NARRATIVE: CASE EVENT DATE: 20120229
